FAERS Safety Report 5318929-9 (Version None)
Quarter: 2007Q2

REPORT INFORMATION
  Report Type: 
  Country: None (occurrence: None)
  Receive Date: 20070503
  Receipt Date: 20070503
  Transmission Date: 20071010
  Serious: Yes (Life-Threatening)
  Sender: FDA-Public Use
  Company Number: None

PATIENT
  Age: 42 Year
  Sex: Female
  Weight: 58.9676 kg

DRUGS (1)
  1. BUPROPION HCL [Suspect]
     Indication: GENERALISED ANXIETY DISORDER
     Dosage: 300MG  1X/DAY  PO
     Route: 048
     Dates: start: 20070421, end: 20070428

REACTIONS (10)
  - AGITATION [None]
  - DEPRESSION [None]
  - DRUG TOXICITY [None]
  - FATIGUE [None]
  - FEELING JITTERY [None]
  - PANIC REACTION [None]
  - PHARMACEUTICAL PRODUCT COMPLAINT [None]
  - POOR QUALITY DRUG ADMINISTERED [None]
  - SUICIDAL IDEATION [None]
  - THERAPEUTIC RESPONSE UNEXPECTED WITH DRUG SUBSTITUTION [None]
